FAERS Safety Report 6417802-2 (Version None)
Quarter: 2009Q4

REPORT INFORMATION
  Report Type: 
  Country: None (occurrence: None)
  Receive Date: 20091028
  Receipt Date: 20091026
  Transmission Date: 20100525
  Serious: Yes (Hospitalization, Other)
  Sender: FDA-Public Use
  Company Number: FR-JNJFOC-20091007847

PATIENT
  Sex: Female

DRUGS (11)
  1. TAVANIC [Suspect]
     Indication: DRUG USE FOR UNKNOWN INDICATION
     Route: 048
     Dates: start: 20090912, end: 20090918
  2. TOPALGIC [Suspect]
     Indication: DRUG USE FOR UNKNOWN INDICATION
     Route: 048
     Dates: start: 20090902
  3. FURADANTIN [Suspect]
     Indication: DRUG USE FOR UNKNOWN INDICATION
     Route: 048
     Dates: start: 20090831, end: 20090907
  4. AUGMENTIN '125' [Suspect]
     Indication: DRUG USE FOR UNKNOWN INDICATION
     Route: 048
     Dates: start: 20090907, end: 20090911
  5. EFFERALGAN [Suspect]
     Indication: DRUG USE FOR UNKNOWN INDICATION
     Route: 048
     Dates: start: 20090827, end: 20090918
  6. SERESTA [Suspect]
     Indication: DRUG USE FOR UNKNOWN INDICATION
     Route: 048
     Dates: start: 20090907
  7. RAMIPRIL [Concomitant]
     Route: 048
     Dates: start: 20050101
  8. CORDARONE [Concomitant]
     Route: 048
     Dates: start: 20090630, end: 20090918
  9. EQUANIL [Concomitant]
     Route: 048
     Dates: start: 20090417, end: 20090907
  10. SEROPLEX [Concomitant]
     Route: 048
     Dates: start: 20090326, end: 20090818
  11. LASILIX [Concomitant]
     Route: 048
     Dates: start: 20080101

REACTIONS (5)
  - ABNORMAL BEHAVIOUR [None]
  - AGITATION [None]
  - INTERNATIONAL NORMALISED RATIO INCREASED [None]
  - LIVER DISORDER [None]
  - MIXED LIVER INJURY [None]
